FAERS Safety Report 20598436 (Version 16)
Quarter: 2022Q3

REPORT INFORMATION
  Report Type: Spontaneous
  Country: US (occurrence: US)
  Receive Date: 20220315
  Receipt Date: 20220928
  Transmission Date: 20221027
  Serious: Yes (Hospitalization, Other)
  Sender: FDA-Public Use
  Company Number: US-PFIZER INC-202200376658

PATIENT
  Age: 26 Year
  Sex: Male
  Weight: 70.31 kg

DRUGS (2)
  1. DESVENLAFAXINE SUCCINATE [Suspect]
     Active Substance: DESVENLAFAXINE SUCCINATE
     Indication: Depression
     Dosage: 50 MG, 1X/DAY
     Dates: start: 20210301, end: 20210323
  2. DESVENLAFAXINE SUCCINATE [Suspect]
     Active Substance: DESVENLAFAXINE SUCCINATE
     Dosage: 50 MG (FOR 3 WEEKS OR 24 DAYS )

REACTIONS (33)
  - Tinnitus [Not Recovered/Not Resolved]
  - Suicidal ideation [Not Recovered/Not Resolved]
  - Brain injury [Unknown]
  - Ototoxicity [Unknown]
  - Drug ineffective [Unknown]
  - Therapeutic product effect delayed [Unknown]
  - Depression [Not Recovered/Not Resolved]
  - Auditory disorder [Unknown]
  - Cerebral disorder [Unknown]
  - Headache [Not Recovered/Not Resolved]
  - Thinking abnormal [Unknown]
  - Anxiety [Not Recovered/Not Resolved]
  - Stress [Unknown]
  - Insomnia [Unknown]
  - Antidepressant discontinuation syndrome [Unknown]
  - Condition aggravated [Unknown]
  - Anger [Unknown]
  - Illness [Unknown]
  - Dizziness [Unknown]
  - Quality of life decreased [Unknown]
  - Disturbance in attention [Unknown]
  - Feeling abnormal [Unknown]
  - Nervous system disorder [Unknown]
  - Feeling of despair [Unknown]
  - Feeding disorder [Unknown]
  - Sexual dysfunction [Unknown]
  - Abnormal dreams [Unknown]
  - Flat affect [Unknown]
  - Electric shock sensation [Unknown]
  - Aphasia [Unknown]
  - Restlessness [Unknown]
  - Neurotransmitter level altered [Unknown]
  - Frustration tolerance decreased [Unknown]

NARRATIVE: CASE EVENT DATE: 20210101
